FAERS Safety Report 9046994 (Version 1)
Quarter: 2013Q1

REPORT INFORMATION
  Report Type: Spontaneous
  Country: US (occurrence: None)
  Receive Date: 20130129
  Receipt Date: 20130129
  Transmission Date: 20140127
  Serious: Yes (Hospitalization, Disabling, Other)
  Sender: FDA-Public Use
  Company Number: None

PATIENT
  Age: 41 Year
  Sex: Female
  Weight: 55.79 kg

DRUGS (1)
  1. DIAZEPAM [Suspect]
     Indication: VERTIGO
     Dosage: 2 TABS
     Route: 048
     Dates: start: 20120824, end: 20121001

REACTIONS (2)
  - Abnormal behaviour [None]
  - Aggression [None]
